FAERS Safety Report 8006507-2 (Version None)
Quarter: 2011Q4

REPORT INFORMATION
  Report Type: 
  Country: None (occurrence: None)
  Receive Date: 20111226
  Receipt Date: 20111215
  Transmission Date: 20120403
  Serious: Yes (Other)
  Sender: FDA-Public Use
  Company Number: PHHY2011DE107251

PATIENT
  Sex: Male

DRUGS (4)
  1. GINKGO [Concomitant]
  2. BETA BLOCKING AGENTS [Concomitant]
  3. AMLODIPINE/VALSARTAN/HYDROCHLOROTHIAZIDE [Suspect]
     Indication: HYPERTENSION
     Route: 048
     Dates: start: 20110101, end: 20111215
  4. EXFORGE HCT [Suspect]
     Indication: HYPERTENSION
     Route: 048
     Dates: start: 20110101, end: 20110101

REACTIONS (10)
  - GENERALISED OEDEMA [None]
  - MUSCLE SPASMS [None]
  - OEDEMA PERIPHERAL [None]
  - RASH MACULO-PAPULAR [None]
  - JOINT SWELLING [None]
  - MUSCLE TIGHTNESS [None]
  - CIRCULATORY COLLAPSE [None]
  - SWELLING FACE [None]
  - LIGAMENT SPRAIN [None]
  - DIZZINESS [None]
